FAERS Safety Report 7475872-7 (Version None)
Quarter: 2011Q2

REPORT INFORMATION
  Report Type: 
  Country: None (occurrence: None)
  Receive Date: 20110504
  Receipt Date: 20110422
  Transmission Date: 20111010
  Serious: Yes (Death, Hospitalization)
  Sender: FDA-Public Use
  Company Number: DE-2011-0960

PATIENT
  Sex: Male

DRUGS (2)
  1. CISPLATIN [Suspect]
     Indication: NON-SMALL CELL LUNG CANCER
     Dates: start: 20100101
  2. NAVELBINE [Suspect]
     Indication: NON-SMALL CELL LUNG CANCER
     Dosage: 50 MG QD IV
     Route: 042
     Dates: start: 20100714, end: 20100715

REACTIONS (5)
  - LEFT VENTRICULAR FAILURE [None]
  - REFUSAL OF TREATMENT BY PATIENT [None]
  - CEREBRAL ISCHAEMIA [None]
  - OVERDOSE [None]
  - CONVULSION [None]
